FAERS Safety Report 9494630 (Version 1)
Quarter: 2013Q3

REPORT INFORMATION
  Report Type: Spontaneous
  Country: KR (occurrence: None)
  Receive Date: 20130828
  Receipt Date: 20130828
  Transmission Date: 20140515
  Serious: Yes (Other)
  Sender: FDA-Public Use
  Company Number: SYM-2013-09580

PATIENT
  Sex: 0

DRUGS (4)
  1. FLUOROURACIL [Suspect]
     Indication: HEPATOCELLULAR CARCINOMA
     Route: 013
  2. EPIRUBICIN (EPIRUBICIN) (EPIRUBICIN) [Suspect]
     Indication: HEPATOCELLULAR CARCINOMA
     Dosage: EVERY CYCLE
  3. CISPLATIN (CISPLATIN) (CISPLATIN) [Suspect]
     Indication: HEPATOCELLULAR CARCINOMA
     Dosage: EVERY CYCLE
  4. SEROTONIN ANTAGONISTS (SEROTONIN ANTAGONISTS) [Concomitant]

REACTIONS (1)
  - Hepatic artery thrombosis [None]
